FAERS Safety Report 8589341-4 (Version None)
Quarter: 2012Q3

REPORT INFORMATION
  Report Type: 
  Country: None (occurrence: None)
  Receive Date: 20120731
  Receipt Date: 20120724
  Transmission Date: 20120928
  Serious: Yes (Hospitalization, Other)
  Sender: FDA-Public Use
  Company Number: IT-DEXPHARM-20120894

PATIENT
  Age: 67 Year
  Sex: Female

DRUGS (4)
  1. NORTRIPTYLINE-FLUPHENAZINE [Concomitant]
  2. CYCLOSPORINE [Suspect]
     Indication: HAEMOLYTIC ANAEMIA
  3. DOXAZOSIN MESYLATE [Concomitant]
  4. OXCARBAZEPINE [Concomitant]

REACTIONS (14)
  - NOCARDIOSIS [None]
  - HYPERLACTACIDAEMIA [None]
  - RED BLOOD CELL COUNT DECREASED [None]
  - APHASIA [None]
  - DRUG LEVEL INCREASED [None]
  - CONFUSIONAL STATE [None]
  - EPILEPSY [None]
  - TREATMENT NONCOMPLIANCE [None]
  - PLATELET COUNT DECREASED [None]
  - BRAIN ABSCESS [None]
  - DRUG INTERACTION [None]
  - BRONCHOPULMONARY ASPERGILLOSIS [None]
  - OPPORTUNISTIC INFECTION [None]
  - HAEMATOTOXICITY [None]
